FAERS Safety Report 24806076 (Version 3)
Quarter: 2025Q2

REPORT INFORMATION
  Report Type: Spontaneous
  Country: US (occurrence: US)
  Receive Date: 20250103
  Receipt Date: 20250411
  Transmission Date: 20250716
  Serious: No
  Sender: NOVARTIS
  Company Number: US-002147023-NVSC2024US246893

PATIENT

DRUGS (1)
  1. COSENTYX [Suspect]
     Active Substance: SECUKINUMAB
     Indication: Product used for unknown indication
     Dosage: INJECT 1 PEN (FOR 5 WEEKS), (THEN INJECT EVERY 4 WEEKS THEREAFTER)
     Route: 065

REACTIONS (4)
  - Device mechanical issue [Unknown]
  - Injection site pain [Unknown]
  - Drug delivery system malfunction [Unknown]
  - Device leakage [Unknown]
